FAERS Safety Report 19119693 (Version 1)
Quarter: 2021Q2

REPORT INFORMATION
  Report Type: Spontaneous
  Country: SE (occurrence: SE)
  Receive Date: 20210412
  Receipt Date: 20210412
  Transmission Date: 20210717
  Serious: Yes (Other)
  Sender: FDA-Public Use
  Company Number: SE-OXFORD PHARMACEUTICALS, LLC-2109175

PATIENT
  Age: 31 Year
  Sex: Female

DRUGS (4)
  1. SERTRALINE HYDROCHLORIDE. [Suspect]
     Active Substance: SERTRALINE HYDROCHLORIDE
     Indication: MAJOR DEPRESSION
  2. FLUCONAZOLE. [Concomitant]
     Active Substance: FLUCONAZOLE
  3. METRONIDAZOLE. [Concomitant]
     Active Substance: METRONIDAZOLE
  4. PROMETHAZINE/EPHEDRINE/CAFFEINE [Concomitant]

REACTIONS (3)
  - Assisted delivery [Unknown]
  - Postpartum haemorrhage [Unknown]
  - Exposure during pregnancy [Unknown]
